FAERS Safety Report 10564904 (Version 1)
Quarter: 2014Q4

REPORT INFORMATION
  Report Type: Spontaneous
  Country: GB (occurrence: GB)
  Receive Date: 20141105
  Receipt Date: 20141105
  Transmission Date: 20150529
  Serious: Yes (Death, Hospitalization, Disabling, Other)
  Sender: FDA-Public Use
  Company Number: GB-ACCORD-026715

PATIENT
  Age: 62 Year
  Sex: Female
  Weight: 96 kg

DRUGS (9)
  1. PREDNISOLONE. [Concomitant]
     Active Substance: PREDNISOLONE
     Dosage: ON REDUCING DOSE
  2. ALFACALCIDOL [Concomitant]
     Active Substance: ALFACALCIDOL
  3. BELATACEPT [Concomitant]
     Active Substance: BELATACEPT
  4. MYCOPHENOLIC ACID. [Concomitant]
     Active Substance: MYCOPHENOLIC ACID
  5. FUROSEMIDE. [Concomitant]
     Active Substance: FUROSEMIDE
  6. IRON [Concomitant]
     Active Substance: IRON
  7. VALGANCICLOVIR/VALGANCICLOVIR HYDROCHLORIDE [Concomitant]
  8. TACROLIMUS. [Suspect]
     Active Substance: TACROLIMUS
     Indication: RENAL TRANSPLANT
     Route: 048
     Dates: start: 20140413, end: 20140620
  9. OMEPRAZOLE. [Concomitant]
     Active Substance: OMEPRAZOLE

REACTIONS (8)
  - Transient ischaemic attack [Recovered/Resolved]
  - Pneumonia [Unknown]
  - Abnormal behaviour [Recovered/Resolved]
  - Systemic candida [Fatal]
  - Circulatory collapse [Unknown]
  - Loss of consciousness [Unknown]
  - Bacteraemia [Fatal]
  - Posterior reversible encephalopathy syndrome [Fatal]

NARRATIVE: CASE EVENT DATE: 20140603
